FAERS Safety Report 8807069 (Version 1)
Quarter: 2012Q4

REPORT INFORMATION
  Report Type: 
  Country: US (occurrence: US)
  Receive Date: 20120925
  Receipt Date: 20120925
  Transmission Date: 20130627
  Serious: No
  Sender: FDA-Public Use
  Company Number: US-ASTRAZENECA-2012SE64541

PATIENT
  Age: 55 Year
  Sex: Male

DRUGS (4)
  1. CRESTOR [Suspect]
     Route: 048
  2. PROBIOTIC [Concomitant]
  3. XANAX [Concomitant]
  4. PAIN MEDICATION [Concomitant]

REACTIONS (5)
  - Anxiety [Unknown]
  - Faeces hard [Unknown]
  - Abdominal discomfort [Unknown]
  - Constipation [Unknown]
  - Drug dose omission [Unknown]
